FAERS Safety Report 11634870 (Version 1)
Quarter: 2015Q4

REPORT INFORMATION
  Report Type: Spontaneous
  Country: US (occurrence: US)
  Receive Date: 20151015
  Receipt Date: 20151015
  Transmission Date: 20160304
  Serious: Yes (Other)
  Sender: FDA-Public Use
  Company Number: US-SA-2015SA056770

PATIENT

DRUGS (9)
  1. CYTOXAN [Suspect]
     Active Substance: CYCLOPHOSPHAMIDE
     Dosage: FOR 6 DAYS DL-3
     Route: 042
     Dates: start: 20130202, end: 20130221
  2. VINCRISTINE [Suspect]
     Active Substance: VINCRISTINE
     Dosage: DAY4 AND DAY11
     Route: 042
     Dates: start: 20130201, end: 20130221
  3. DEXAMETHASONE. [Suspect]
     Active Substance: DEXAMETHASONE
     Dosage: DL-4, D11-14
     Route: 048
     Dates: start: 20130201, end: 20130221
  4. RITUXAN [Suspect]
     Active Substance: RITUXIMAB
     Dosage: D1, Q21D
     Route: 042
     Dates: start: 20130201, end: 20130226
  5. LEUCOVORIN. [Suspect]
     Active Substance: LEUCOVORIN
     Dosage: Q6H X6
     Route: 048
     Dates: start: 20130222, end: 20130314
  6. CYTARABINE. [Suspect]
     Active Substance: CYTARABINE
     Dosage: Q12H, D2, D3 DOSE:3 GRAM(S)/SQUARE METER
     Route: 042
     Dates: start: 20130222, end: 20130225
  7. CAMPATH [Suspect]
     Active Substance: ALEMTUZUMAB
     Route: 042
     Dates: start: 20130321, end: 20130321
  8. DOXORUBICIN [Suspect]
     Active Substance: DOXORUBICIN
     Dosage: D4
     Route: 042
     Dates: start: 20130201, end: 20130221
  9. METHOTREXATE [Suspect]
     Active Substance: METHOTREXATE
     Dosage: 200 MG/M2 LOAD THEN 800 MG/2 FOLLOW, FREQUENCY:DL
     Route: 042
     Dates: start: 20130222, end: 20130226

REACTIONS (1)
  - Chronic lymphocytic leukaemia [Not Recovered/Not Resolved]
